FAERS Safety Report 4469048-5 (Version None)
Quarter: 2004Q4

REPORT INFORMATION
  Report Type: 
  Country: None (occurrence: None)
  Receive Date: 20041004
  Receipt Date: 20041004
  Transmission Date: 20050328
  Serious: Yes (Other)
  Sender: FDA-Public Use
  Company Number: None

PATIENT
  Age: 71 Year
  Sex: Male
  Weight: 108 kg

DRUGS (16)
  1. TERAZOSIN HCL [Suspect]
  2. ASPIRIN [Concomitant]
  3. LANOXIN [Concomitant]
  4. DILTIAZEM (INWOOD) [Concomitant]
  5. DOCUSTE NA [Concomitant]
  6. FUROSEMIDE [Concomitant]
  7. SYNTHROID [Concomitant]
  8. MILD OF MAGNESIA [Concomitant]
  9. MULTI-VITAMIN [Concomitant]
  10. OMEPRAZOLE [Concomitant]
  11. QUETIAPINE FUMARATE [Concomitant]
  12. SYNTHROID [Concomitant]
  13. POTASSIUM CHLORIDE [Concomitant]
  14. DIVALAPROEX [Concomitant]
  15. METOPROLOL TARTRATE [Concomitant]
  16. COUMADIN [Concomitant]

REACTIONS (1)
  - HYPOTENSION [None]
